FAERS Safety Report 10879104 (Version 1)
Quarter: 2015Q1

REPORT INFORMATION
  Report Type: Spontaneous
  Country: US (occurrence: None)
  Receive Date: 20150224
  Receipt Date: 20150224
  Transmission Date: 20150721
  Serious: Yes (Other)
  Sender: FDA-Public Use
  Company Number: None

PATIENT
  Age: 62 Year
  Sex: Female
  Weight: 69.4 kg

DRUGS (6)
  1. DEXALANT [Concomitant]
  2. TYLENOL [Concomitant]
     Active Substance: ACETAMINOPHEN
  3. CASTROL OIL [Concomitant]
  4. CEPHALEXIN. [Suspect]
     Active Substance: CEPHALEXIN
     Indication: BRONCHITIS
     Dosage: 1 CAPSULE THREE TIMES DAILY TAKEN BY MOUTH
     Route: 048
     Dates: start: 20150219, end: 20150222
  5. CEPHALEXIN. [Concomitant]
     Active Substance: CEPHALEXIN
  6. ACETAMINOPHEN/ACID [Concomitant]

REACTIONS (5)
  - Toothache [None]
  - Dyspnoea [None]
  - Headache [None]
  - Back pain [None]
  - Chest pain [None]

NARRATIVE: CASE EVENT DATE: 20150219
